FAERS Safety Report 16824668 (Version 3)
Quarter: 2020Q2

REPORT INFORMATION
  Report Type: Spontaneous
  Country: US (occurrence: US)
  Receive Date: 20190918
  Receipt Date: 20200615
  Transmission Date: 20200713
  Serious: Yes (Hospitalization, Other)
  Sender: FDA-Public Use
  Company Number: US-VIFOR (INTERNATIONAL) INC.-VIT-2019-08965

PATIENT
  Age: 57 Year
  Sex: Male

DRUGS (1)
  1. VELTASSA [Suspect]
     Active Substance: PATIROMER
     Indication: HYPERKALAEMIA
     Route: 048
     Dates: start: 2017

REACTIONS (10)
  - Hypertension [Unknown]
  - Dizziness [Unknown]
  - Off label use [Unknown]
  - Vision blurred [Unknown]
  - Loss of consciousness [Unknown]
  - Nausea [Not Recovered/Not Resolved]
  - Balance disorder [Unknown]
  - Blindness [Not Recovered/Not Resolved]
  - Hiccups [Unknown]
  - Fluid retention [Unknown]

NARRATIVE: CASE EVENT DATE: 201901
